FAERS Safety Report 4276423-0 (Version None)
Quarter: 2004Q1

REPORT INFORMATION
  Report Type: 
  Country: None (occurrence: None)
  Receive Date: 20040121
  Receipt Date: 20040121
  Transmission Date: 20041129
  Serious: Yes (Life-Threatening, Hospitalization, Disabling)
  Sender: FDA-Public Use
  Company Number: None

PATIENT
  Sex: Male

DRUGS (1)
  1. PHENYTOIN [Suspect]
     Indication: CONVULSION
     Dosage: 425 MG/DAY TID ORAL
     Route: 048
     Dates: start: 20031104, end: 20031227

REACTIONS (2)
  - ARRHYTHMIA [None]
  - CARDIAC ARREST [None]
